FAERS Safety Report 20603473 (Version 3)
Quarter: 2022Q2

REPORT INFORMATION
  Report Type: Spontaneous
  Country: AT (occurrence: AT)
  Receive Date: 20220316
  Receipt Date: 20220425
  Transmission Date: 20220721
  Serious: No
  Sender: FDA-Public Use
  Company Number: AT-PFIZER INC-202200346327

PATIENT
  Age: 17 Year
  Sex: Female

DRUGS (1)
  1. MEDROXYPROGESTERONE [Suspect]
     Active Substance: MEDROXYPROGESTERONE

REACTIONS (2)
  - Product administration error [Unknown]
  - Liquid product physical issue [Unknown]
